FAERS Safety Report 11831288 (Version 1)
Quarter: 2015Q4

REPORT INFORMATION
  Report Type: Spontaneous
  Country: US (occurrence: None)
  Receive Date: 20151211
  Receipt Date: 20151211
  Transmission Date: 20160305
  Serious: Yes (Other)
  Sender: FDA-Public Use
  Company Number: None

PATIENT
  Age: 72 Year
  Sex: Male
  Weight: 99.79 kg

DRUGS (10)
  1. METOPROLOL [Concomitant]
     Active Substance: METOPROLOL
  2. XARELTO [Concomitant]
     Active Substance: RIVAROXABAN
  3. CRESTOR [Concomitant]
     Active Substance: ROSUVASTATIN CALCIUM
  4. SEROQUEL [Concomitant]
     Active Substance: QUETIAPINE FUMARATE
  5. GABAPENTIN. [Suspect]
     Active Substance: GABAPENTIN
  6. CENTRUM [Concomitant]
     Active Substance: VITAMINS
  7. EXELON PATCH [Concomitant]
     Active Substance: RIVASTIGMINE
  8. RIVASTIGMINE. [Suspect]
     Active Substance: RIVASTIGMINE
     Indication: DEMENTIA ALZHEIMER^S TYPE
     Route: 061
  9. ZOLOFT [Concomitant]
     Active Substance: SERTRALINE HYDROCHLORIDE
  10. PLAVIX [Concomitant]
     Active Substance: CLOPIDOGREL BISULFATE

REACTIONS (5)
  - Product adhesion issue [None]
  - Product substitution issue [None]
  - Abnormal behaviour [None]
  - Disease recurrence [None]
  - Incorrect dose administered [None]

NARRATIVE: CASE EVENT DATE: 20151018
